FAERS Safety Report 5107012-3 (Version None)
Quarter: 2006Q3

REPORT INFORMATION
  Report Type: 
  Country: None (occurrence: None)
  Receive Date: 20060913
  Receipt Date: 20060831
  Transmission Date: 20061208
  Serious: Yes (Other)
  Sender: FDA-Public Use
  Company Number: POMP-10764

PATIENT
  Sex: Female

DRUGS (1)
  1. MYOZYME [Suspect]
     Indication: GLYCOGEN STORAGE DISEASE TYPE II
     Dates: start: 20060613

REACTIONS (15)
  - ASPARTATE AMINOTRANSFERASE INCREASED [None]
  - BLOOD CREATINE PHOSPHOKINASE INCREASED [None]
  - BLOOD CREATINE PHOSPHOKINASE MB INCREASED [None]
  - BLOOD LACTATE DEHYDROGENASE INCREASED [None]
  - BRADYCARDIA [None]
  - CARDIAC ENZYMES INCREASED [None]
  - CARDIAC FAILURE [None]
  - DISEASE RECURRENCE [None]
  - MYOCARDIAL ISCHAEMIA [None]
  - NODAL ARRHYTHMIA [None]
  - PSEUDOMONAS INFECTION [None]
  - SINOATRIAL BLOCK [None]
  - STENOTROPHOMONAS INFECTION [None]
  - TROPONIN I INCREASED [None]
  - VENTRICULAR HYPERTROPHY [None]
